FAERS Safety Report 11204886 (Version 1)
Quarter: 2015Q2

REPORT INFORMATION
  Report Type: Spontaneous
  Country: FR (occurrence: None)
  Receive Date: 20150617
  Receipt Date: 20150617
  Transmission Date: 20150821
  Serious: Yes (Hospitalization)
  Sender: FDA-Public Use
  Company Number: CO-UX-FR-2015-009

PATIENT
  Age: 75 Year
  Sex: Male

DRUGS (10)
  1. XATRAL [Suspect]
     Active Substance: ALFUZOSIN
     Route: 048
     Dates: start: 20150216, end: 20150507
  2. LASILIX FAIBLE [Suspect]
     Active Substance: FUROSEMIDE
     Route: 048
     Dates: start: 20150320, end: 20150507
  3. LEVOTHYROX (UNKNOWN) (LEVOTHYROXINE SODIUM) [Concomitant]
  4. CRESTOR (UNKNOWN) (ROSUVASTATIN CALCIUM) [Concomitant]
  5. CORENITEC (UNKNOWN) (HYDROCHLOROTHIAZIDE, ENALAPRIL MALEATE) [Concomitant]
  6. INEXIUM [Suspect]
     Active Substance: ESOMEPRAZOLE
     Route: 048
     Dates: start: 20150216, end: 20150507
  7. EZETROL (UNKNOWN) (EZETIMIBE) [Concomitant]
  8. GLUCOPHAGE (UNKNOWN) (METFORMIN HYDROCHLORIDE) [Concomitant]
  9. ATENOLOL (UNKNOWN) (ATENOLOL) [Concomitant]
  10. RENITEC [Suspect]
     Active Substance: ENALAPRIL MALEATE
     Route: 048
     Dates: start: 20150320, end: 20150507

REACTIONS (3)
  - Loss of consciousness [None]
  - Agranulocytosis [None]
  - Malaise [None]

NARRATIVE: CASE EVENT DATE: 20150507
